FAERS Safety Report 7052786-8 (Version None)
Quarter: 2010Q4

REPORT INFORMATION
  Report Type: 
  Country: None (occurrence: None)
  Receive Date: 20101014
  Receipt Date: 20101003
  Transmission Date: 20110411
  Serious: Yes (Hospitalization, Other)
  Sender: FDA-Public Use
  Company Number: 2010SP052882

PATIENT
  Sex: Female

DRUGS (2)
  1. PEG-INTRON [Suspect]
     Indication: HEPATITIS C
     Dates: start: 20100722
  2. RIBAVARIN [Suspect]
     Indication: HEPATITIS C
     Dates: start: 20100722

REACTIONS (6)
  - ALCOHOL USE [None]
  - CELLULITIS [None]
  - PAIN [None]
  - PSORIASIS [None]
  - REFUSAL OF TREATMENT BY PATIENT [None]
  - TREATMENT NONCOMPLIANCE [None]
